FAERS Safety Report 5205489-6 (Version None)
Quarter: 2006Q4

REPORT INFORMATION
  Report Type: 
  Country: None (occurrence: None)
  Receive Date: 20061027
  Receipt Date: 20060124
  Transmission Date: 20070319
  Serious: Yes (Other)
  Sender: FDA-Public Use
  Company Number: HQWYE526827JAN06

PATIENT
  Age: 64 Year
  Sex: Female
  Weight: 57.2 kg

DRUGS (4)
  1. PREMARIN [Suspect]
     Indication: HORMONE REPLACEMENT THERAPY
     Dosage: SEE IMAGE
     Route: 048
  2. PROVERA [Concomitant]
  3. SYNTHROID [Concomitant]
  4. TRANXENE [Concomitant]

REACTIONS (3)
  - CHOKING SENSATION [None]
  - EYE PRURITUS [None]
  - LACRIMATION INCREASED [None]
